FAERS Safety Report 15118497 (Version 2)
Quarter: 2024Q4

REPORT INFORMATION
  Report Type: Spontaneous
  Country: SV (occurrence: SV)
  Receive Date: 20180708
  Receipt Date: 20241126
  Transmission Date: 20250114
  Serious: Yes (Other)
  Sender: ROCHE
  Company Number: SV-002147023-PHHY2018SV034542

PATIENT

DRUGS (1)
  1. RANIBIZUMAB [Suspect]
     Active Substance: RANIBIZUMAB
     Indication: Macular degeneration
     Route: 042

REACTIONS (1)
  - Eye inflammation [Unknown]
